FAERS Safety Report 9660962 (Version 2)
Quarter: 2013Q4

REPORT INFORMATION
  Report Type: Spontaneous
  Country: US (occurrence: US)
  Receive Date: 20131031
  Receipt Date: 20131031
  Transmission Date: 20140711
  Serious: Yes (Other)
  Sender: FDA-Public Use
  Company Number: US-GALDERMA-US13002751

PATIENT
  Age: 48 Year
  Sex: Female

DRUGS (5)
  1. METRONIDAZOLE GEL, 1% [Suspect]
     Indication: ROSACEA
     Dosage: 1 %
     Route: 061
     Dates: start: 20130803, end: 20130806
  2. ORACEA (DOXYCYCLINE, USP) CAPSULES 40 MG [Suspect]
     Indication: ROSACEA
     Route: 048
     Dates: start: 20130819, end: 20130828
  3. SULFA BASED SOAP [Concomitant]
     Indication: THERAPEUTIC SKIN CARE TOPICAL
     Route: 061
     Dates: end: 20130807
  4. BARE MINERALS COSMETICS [Concomitant]
     Route: 061
  5. COVER GIRL FOUNDATION [Concomitant]
     Route: 061

REACTIONS (17)
  - Impaired work ability [Unknown]
  - Acne [Recovered/Resolved]
  - Tenderness [Recovered/Resolved]
  - Skin tightness [Recovered/Resolved]
  - Rash papular [Recovered/Resolved]
  - Erythema [Recovered/Resolved]
  - Pruritus [Recovered/Resolved]
  - Skin burning sensation [Recovered/Resolved]
  - Dermatitis [Recovered/Resolved]
  - Skin exfoliation [Recovered/Resolved]
  - Swelling face [Recovered/Resolved]
  - Dry skin [Recovered/Resolved]
  - Skin irritation [Recovered/Resolved]
  - Off label use [Recovered/Resolved]
  - Condition aggravated [Recovered/Resolved]
  - Impaired healing [Recovered/Resolved]
  - Drug ineffective [Not Recovered/Not Resolved]
